FAERS Safety Report 5393081-2 (Version None)
Quarter: 2007Q3

REPORT INFORMATION
  Report Type: 
  Country: None (occurrence: None)
  Receive Date: 20070719
  Receipt Date: 20070709
  Transmission Date: 20080115
  Serious: Yes (Hospitalization)
  Sender: FDA-Public Use
  Company Number: 2007-02246

PATIENT
  Age: 63 Year
  Sex: Female
  Weight: 61.4 kg

DRUGS (11)
  1. VELCADE [Suspect]
     Indication: MULTIPLE MYELOMA
     Dosage: 2.10 MG, IV BOLUS
     Route: 040
     Dates: start: 20070508, end: 20070629
  2. DOXORUBICIN HCL [Suspect]
     Indication: MULTIPLE MYELOMA
  3. DEXAMETHASONE [Suspect]
     Indication: MULTIPLE MYELOMA
  4. ACYCLOVIR [Concomitant]
  5. SULFAMETHOXAZOLE + TRIMETHOPRIM [Concomitant]
  6. LANSOPRAZOLE [Concomitant]
  7. FOLIC ACID [Concomitant]
  8. ALLOPURINOL [Concomitant]
  9. MULTIVITAMINS (ERGOCALCIFEROL, PANTHENOL, NICOTINAMIDE, RIBOFLAVIN, TH [Concomitant]
  10. PYRIDOXINE (PYRIDOXINE) [Concomitant]
  11. VITAMIN B COMPLEX (PYRIDOXINE HYDROCHLORIDE, RIBOFLAVIN, CALCIUM PANTO [Concomitant]

REACTIONS (6)
  - ABDOMINAL PAIN LOWER [None]
  - CREPITATIONS [None]
  - DIARRHOEA [None]
  - DRY MOUTH [None]
  - NAUSEA [None]
  - WHEEZING [None]
